FAERS Safety Report 8201011-0 (Version None)
Quarter: 2012Q1

REPORT INFORMATION
  Report Type: 
  Country: None (occurrence: None)
  Receive Date: 20120312
  Receipt Date: 20111214
  Transmission Date: 20120608
  Serious: No
  Sender: FDA-Public Use
  Company Number: US-PFIZER INC-2011268960

PATIENT
  Sex: Female

DRUGS (2)
  1. XALKORI [Suspect]
     Indication: BRONCHIAL CARCINOMA
     Dosage: 250 MG, UNK
     Route: 048
     Dates: start: 20111001
  2. XALKORI [Suspect]
     Dosage: 250 MG, 2X/DAY
     Route: 048
     Dates: start: 20111122

REACTIONS (4)
  - FATIGUE [None]
  - CONSTIPATION [None]
  - NAUSEA [None]
  - VOMITING [None]
